FAERS Safety Report 8118320-6 (Version None)
Quarter: 2012Q1

REPORT INFORMATION
  Report Type: 
  Country: None (occurrence: None)
  Receive Date: 20120207
  Receipt Date: 20120131
  Transmission Date: 20120608
  Serious: Yes (Other)
  Sender: FDA-Public Use
  Company Number: NO-PFIZER INC-2012029077

PATIENT
  Age: 35 Year
  Sex: Male

DRUGS (1)
  1. EFFEXOR [Suspect]

REACTIONS (8)
  - CHILLS [None]
  - DYSPHEMIA [None]
  - MUSCULOSKELETAL STIFFNESS [None]
  - URINARY RETENTION [None]
  - SPEECH DISORDER [None]
  - AMNESIA [None]
  - DISTURBANCE IN ATTENTION [None]
  - COORDINATION ABNORMAL [None]
